FAERS Safety Report 11689510 (Version 2)
Quarter: 2015Q4

REPORT INFORMATION
  Report Type: Spontaneous
  Country: GB (occurrence: GB)
  Receive Date: 20151102
  Receipt Date: 20151216
  Transmission Date: 20160304
  Serious: Yes (Hospitalization, Other)
  Sender: FDA-Public Use
  Company Number: GB-PFIZER INC-2015362694

PATIENT
  Age: 65 Year
  Sex: Male

DRUGS (3)
  1. RAMIPRIL. [Suspect]
     Active Substance: RAMIPRIL
     Dosage: UNK
     Route: 065
     Dates: start: 200411, end: 20150921
  2. ASPIRIN. [Suspect]
     Active Substance: ASPIRIN
     Dosage: UNK
     Route: 065
  3. SERELAXIN [Suspect]
     Active Substance: SERELAXIN
     Indication: CORONARY ARTERY DISEASE
     Dosage: UNK
     Route: 042
     Dates: start: 20150901, end: 20150903

REACTIONS (2)
  - Angioedema [Recovered/Resolved]
  - Gastrooesophageal reflux disease [Recovered/Resolved]

NARRATIVE: CASE EVENT DATE: 20150920
